FAERS Safety Report 24145774 (Version 1)
Quarter: 2024Q3

REPORT INFORMATION
  Report Type: Report from Study
  Country: US (occurrence: US)
  Receive Date: 20240729
  Receipt Date: 20240729
  Transmission Date: 20241017
  Serious: Yes (Hospitalization, Other)
  Sender: GILEAD
  Company Number: US-GILEAD-2024-0682013

PATIENT
  Sex: Female

DRUGS (1)
  1. AMBRISENTAN [Suspect]
     Active Substance: AMBRISENTAN
     Indication: Product used for unknown indication
     Dosage: 10 MG
     Route: 065
     Dates: start: 20110815

REACTIONS (7)
  - Pulmonary fibrosis [Unknown]
  - Interstitial lung disease [Unknown]
  - Blood pressure abnormal [Unknown]
  - Pulmonary arterial hypertension [Unknown]
  - Illness [Unknown]
  - Catheter placement [Recovered/Resolved]
  - Memory impairment [Unknown]
